FAERS Safety Report 14334160 (Version 4)
Quarter: 2021Q1

REPORT INFORMATION
  Report Type: Spontaneous
  Country: IE (occurrence: IE)
  Receive Date: 20171228
  Receipt Date: 20210121
  Transmission Date: 20210419
  Serious: Yes (Life-Threatening, Hospitalization, Other)
  Sender: FDA-Public Use
  Company Number: IE-TEVA-2017-IE-837116

PATIENT
  Age: 35 Year
  Sex: Female
  Weight: 91 kg

DRUGS (14)
  1. INSULIN LISPRO [Suspect]
     Active Substance: INSULIN LISPRO
     Indication: TYPE 1 DIABETES MELLITUS
     Dosage: 90 IU (INTERNATIONAL UNIT) DAILY; THERAPY START DATE ASKU, THERAPY END DATE ASKU
     Route: 058
  2. LYRICA [Concomitant]
     Active Substance: PREGABALIN
     Route: 065
     Dates: start: 20120907
  3. SERTRALINE [Concomitant]
     Active Substance: SERTRALINE HYDROCHLORIDE
     Route: 065
     Dates: start: 2000
  4. LANTUS [Suspect]
     Active Substance: INSULIN GLARGINE
     Dosage: 42 IU, THERAPY END DATE :ASKU
     Route: 058
     Dates: start: 20021016
  5. AMITRIPTYLINE [Concomitant]
     Active Substance: AMITRIPTYLINE
     Route: 065
     Dates: start: 20120907
  6. METFORMIN HYDROCHLORIDE. [Suspect]
     Active Substance: METFORMIN HYDROCHLORIDE
     Indication: TYPE 1 DIABETES MELLITUS
     Dosage: 1000 MILLIGRAM DAILY; THERAPY END DATE ASKU
     Route: 065
     Dates: start: 20150408
  7. L?THYROXINE [Concomitant]
     Active Substance: LEVOTHYROXINE
     Route: 065
     Dates: start: 20170406
  8. LANTUS [Suspect]
     Active Substance: INSULIN GLARGINE
     Dosage: THERAPY START DATE ASKU, THERAPY END DATE ASKU
     Route: 058
  9. INSULIN LISPRO [Suspect]
     Active Substance: INSULIN LISPRO
     Dosage: 72 IU (INTERNATIONAL UNIT) DAILY; THERAPY END DATE ASKU
     Route: 058
     Dates: start: 20021016
  10. INSULIN LISPRO [Suspect]
     Active Substance: INSULIN LISPRO
     Dosage: 86 IU (INTERNATIONAL UNIT) DAILY; THERAPY START DATE ASKU, THERAPY END DATE ASKU
     Route: 058
  11. FOLIC ACID. [Concomitant]
     Active Substance: FOLIC ACID
     Route: 065
     Dates: start: 20170323
  12. ACTRAPID [Concomitant]
     Active Substance: INSULIN HUMAN
     Dosage: THERAPY END DATE ASKU, 1IU UNK
     Route: 041
     Dates: start: 20170907
  13. LANTUS [Suspect]
     Active Substance: INSULIN GLARGINE
     Indication: TYPE 1 DIABETES MELLITUS
     Dosage: 90 IU (INTERNATIONAL UNIT) DAILY; THERAPY START DATE ASKU, THERAPY END DATE ASKU
     Route: 058
  14. LANTUS [Suspect]
     Active Substance: INSULIN GLARGINE
     Dosage: THERAPY END DATE ASKU
     Route: 058
     Dates: start: 20021016

REACTIONS (9)
  - Product use issue [Unknown]
  - Maternal exposure during pregnancy [Unknown]
  - Caesarean section [Recovered/Resolved]
  - Diabetes mellitus inadequate control [Recovered/Resolved]
  - Infection [Unknown]
  - Postpartum haemorrhage [Recovered/Resolved]
  - Hypoglycaemia [Recovered/Resolved]
  - Diabetes mellitus inadequate control [Recovered/Resolved]
  - Diabetes mellitus inadequate control [Recovered/Resolved]

NARRATIVE: CASE EVENT DATE: 20170420
